FAERS Safety Report 4468005-2 (Version None)
Quarter: 2004Q4

REPORT INFORMATION
  Report Type: 
  Country: None (occurrence: None)
  Receive Date: 20041004
  Receipt Date: 20040921
  Transmission Date: 20050328
  Serious: Yes (Hospitalization)
  Sender: FDA-Public Use
  Company Number: 2004235149CH

PATIENT
  Sex: Female

DRUGS (13)
  1. CELEBREX [Suspect]
     Dosage: 200 MG, BID, ORAL
     Route: 048
     Dates: end: 20040809
  2. LITHIUM CARBONATE [Suspect]
     Indication: BIPOLAR DISORDER
     Dosage: ORAL
     Route: 048
     Dates: start: 20030926, end: 20040809
  3. HYDROCHLOROTHIAZIDE [Suspect]
     Indication: ESSENTIAL HYPERTENSION
     Dosage: 1 DF, QD, ORAL
     Route: 048
  4. IRBESARTAN [Suspect]
     Indication: ESSENTIAL HYPERTENSION
     Dosage: 1 DF, QD, ORAL
     Route: 048
  5. ASPIRIN [Concomitant]
  6. INDERAL [Concomitant]
  7. SIMVASTATIN [Concomitant]
  8. SURMONTIL (TRIMIPRAMINDE) [Concomitant]
  9. SERESTA [Concomitant]
  10. SIRDALUD (TIZANIDINE HYDROCHLORIDE) [Concomitant]
  11. NEURONTIN [Concomitant]
  12. TRAMADOL HCL [Concomitant]
  13. PHLEBODRIL N (DEXTRAN SULFATE , RUSCUS ACUEATUS) [Concomitant]

REACTIONS (5)
  - MYOCLONUS [None]
  - PERSONALITY DISORDER [None]
  - POLYDIPSIA [None]
  - THERAPEUTIC AGENT TOXICITY [None]
  - TREMOR [None]
